FAERS Safety Report 6821028-8 (Version None)
Quarter: 2010Q3

REPORT INFORMATION
  Report Type: 
  Country: None (occurrence: None)
  Receive Date: 20100707
  Receipt Date: 20071111
  Transmission Date: 20110219
  Serious: No
  Sender: FDA-Public Use
  Company Number: US-PFIZER INC-2007094857

PATIENT
  Sex: Female
  Weight: 65.77 kg

DRUGS (2)
  1. ZOLOFT [Suspect]
     Indication: PANIC DISORDER
     Dosage: 25MG QD EVERY DAY TDD:25MG
     Dates: start: 20060201, end: 20070101
  2. MICROGESTIN 1.5/30 [Concomitant]
     Indication: CONTRACEPTION

REACTIONS (1)
  - ALOPECIA [None]
